FAERS Safety Report 9722480 (Version 2)
Quarter: 2013Q4

REPORT INFORMATION
  Report Type: Report from Study
  Country: NZ (occurrence: NZ)
  Receive Date: 20131202
  Receipt Date: 20131212
  Transmission Date: 20140711
  Serious: Yes (Death, Hospitalization)
  Sender: FDA-Public Use
  Company Number: PHHY2013NZ138399

PATIENT
  Age: 64 Year
  Sex: Male

DRUGS (1)
  1. CLOZARIL [Suspect]
     Dosage: UNK
     Dates: start: 19900704

REACTIONS (8)
  - Death [Fatal]
  - Choking [Unknown]
  - Circulatory collapse [Unknown]
  - Respiratory arrest [Unknown]
  - Cardiac arrest [Unknown]
  - Sedation [Unknown]
  - Blood pressure increased [Unknown]
  - Vomiting [Unknown]
